FAERS Safety Report 22528090 (Version 1)
Quarter: 2023Q2

REPORT INFORMATION
  Report Type: Report from Study
  Country: US (occurrence: US)
  Receive Date: 20230607
  Receipt Date: 20230607
  Transmission Date: 20230721
  Serious: Yes (Other)
  Sender: FDA-Public Use
  Company Number: US-ABBVIE-4732273

PATIENT
  Sex: Female

DRUGS (1)
  1. HUMIRA [Suspect]
     Active Substance: ADALIMUMAB
     Indication: Rheumatoid arthritis
     Dosage: CITRATE FREE, FORM STRENGTH: 40MG
     Route: 058
     Dates: start: 20191202

REACTIONS (6)
  - Joint injury [Recovering/Resolving]
  - Transient ischaemic attack [Unknown]
  - Fall [Recovering/Resolving]
  - Exostosis [Unknown]
  - Blood pressure increased [Unknown]
  - Inflammation [Unknown]
